FAERS Safety Report 17316399 (Version 1)
Quarter: 2020Q1

REPORT INFORMATION
  Report Type: Report from Study
  Country: GB (occurrence: GB)
  Receive Date: 20200124
  Receipt Date: 20200124
  Transmission Date: 20200409
  Serious: Yes (Other)
  Sender: FDA-Public Use
  Company Number: NVSC2020GB015030

PATIENT
  Sex: Female

DRUGS (1)
  1. HYRIMOZ [Suspect]
     Active Substance: ADALIMUMAB-ADAZ
     Indication: RHEUMATOID ARTHRITIS
     Dosage: 1 DF, Q2W
     Route: 058

REACTIONS (7)
  - Lower respiratory tract infection [Unknown]
  - Influenza like illness [Unknown]
  - Malaise [Unknown]
  - Depression [Unknown]
  - Nasopharyngitis [Unknown]
  - Immune system disorder [Unknown]
  - Product dose omission [Unknown]
